FAERS Safety Report 25238699 (Version 1)
Quarter: 2025Q2

REPORT INFORMATION
  Report Type: Report from Study
  Country: AT (occurrence: AT)
  Receive Date: 20250425
  Receipt Date: 20250425
  Transmission Date: 20250717
  Serious: Yes (Other)
  Sender: EISAI
  Company Number: AT-Eisai-EC-2025-187754

PATIENT
  Age: 62 Year
  Sex: Male

DRUGS (5)
  1. LENVATINIB [Suspect]
     Active Substance: LENVATINIB
     Indication: Non-small cell lung cancer
     Dates: start: 20240515, end: 20240520
  2. PEMBROLIZUMAB [Suspect]
     Active Substance: PEMBROLIZUMAB
     Indication: Non-small cell lung cancer
     Dates: start: 20250219, end: 20250219
  3. BISOPROLOL FUMARATE [Concomitant]
     Active Substance: BISOPROLOL FUMARATE
  4. CANDESARTAN [Concomitant]
     Active Substance: CANDESARTAN
  5. EZETIMIBE\ROSUVASTATIN CALCIUM [Concomitant]
     Active Substance: EZETIMIBE\ROSUVASTATIN CALCIUM

REACTIONS (1)
  - Interstitial lung abnormality [Not Recovered/Not Resolved]

NARRATIVE: CASE EVENT DATE: 20250303
